FAERS Safety Report 5684351-9 (Version None)
Quarter: 2008Q2

REPORT INFORMATION
  Report Type: 
  Country: None (occurrence: None)
  Receive Date: 20080327
  Receipt Date: 20080124
  Transmission Date: 20081010
  Serious: Yes (Other)
  Sender: FDA-Public Use
  Company Number: 8028889

PATIENT
  Age: 47 Year
  Sex: Male

DRUGS (1)
  1. LORTAB [Suspect]

REACTIONS (1)
  - DEPENDENCE [None]
